FAERS Safety Report 8217194-2 (Version None)
Quarter: 2012Q1

REPORT INFORMATION
  Report Type: 
  Country: None (occurrence: None)
  Receive Date: 20120319
  Receipt Date: 20120305
  Transmission Date: 20120608
  Serious: Yes (Hospitalization)
  Sender: FDA-Public Use
  Company Number: US-BRISTOL-MYERS SQUIBB COMPANY-16242810

PATIENT
  Age: 66 Year
  Sex: Female
  Weight: 59 kg

DRUGS (14)
  1. FERGON [Suspect]
     Indication: IRON DEFICIENCY ANAEMIA
     Route: 048
     Dates: start: 20090227, end: 20090828
  2. SIMVASTATIN [Suspect]
     Indication: BLOOD CHOLESTEROL
     Dates: start: 20090227, end: 20090828
  3. ARTIFICIAL TEARS [Concomitant]
     Indication: DRY EYE
     Dosage: 1DF=4 GTT
     Route: 047
     Dates: start: 20090309
  4. CIPROFLOXACIN HYDROCHLORIDE [Concomitant]
     Dosage: 1DF= 1000MG/10ML
  5. MEGACE [Suspect]
     Indication: APPETITE DISORDER
     Route: 048
  6. COLACE [Suspect]
     Indication: CONSTIPATION
     Dates: start: 20090402, end: 20090828
  7. SUNITINIB MALATE [Suspect]
     Indication: RENAL CANCER
     Dosage: TAB
     Dates: start: 20090601, end: 20090828
  8. EXTRA STRENGTH TYLENOL [Concomitant]
     Dosage: TABS
     Route: 048
  9. ACTONEL [Concomitant]
     Indication: OSTEOPOROSIS
     Dates: start: 20060523
  10. PIOGLITAZONE HCL [Suspect]
     Indication: DIABETES MELLITUS
     Route: 048
     Dates: start: 20070604
  11. RANITIDINE [Suspect]
     Indication: ULCER
     Dates: end: 20090828
  12. ZOFRAN [Suspect]
     Indication: NAUSEA
     Dosage: TABS. EVERY 6 HOURS;TABS 1DF= EVERY 6 HRS AS NEEDED
     Route: 048
     Dates: end: 20090828
  13. LORTAB [Suspect]
     Indication: ANALGESIC THERAPY
     Dosage: EVERY 6 HOURS;1DF=EVERY 6 HRS 25AUG09-28AUG09 (3 DAYS)
     Dates: start: 20090402, end: 20090628
  14. ASPIRIN [Concomitant]
     Indication: PAIN IN EXTREMITY
     Dates: end: 20090828

REACTIONS (6)
  - HEADACHE [None]
  - COGNITIVE DISORDER [None]
  - VOMITING [None]
  - ABDOMINAL PAIN [None]
  - FATIGUE [None]
  - MALAISE [None]
